FAERS Safety Report 17233912 (Version 1)
Quarter: 2020Q1

REPORT INFORMATION
  Report Type: Spontaneous
  Country: US (occurrence: US)
  Receive Date: 20200106
  Receipt Date: 20200106
  Transmission Date: 20200409
  Serious: Yes (Hospitalization)
  Sender: FDA-Public Use
  Company Number: US-CELGENEUS-USA-20200100031

PATIENT
  Age: 75 Year
  Sex: Female
  Weight: 36.3 kg

DRUGS (3)
  1. DURVALUMAB. [Concomitant]
     Active Substance: DURVALUMAB
     Indication: SQUAMOUS CELL CARCINOMA OF HEAD AND NECK
     Dosage: 1500 MILLIGRAM
     Route: 041
     Dates: start: 20191008, end: 20191104
  2. VIDAZA [Suspect]
     Active Substance: AZACITIDINE
     Indication: SQUAMOUS CELL CARCINOMA OF HEAD AND NECK
     Dosage: 40 MILLIGRAM/SQ. METER
     Route: 058
     Dates: start: 20190910, end: 20191116
  3. TREMELIMUMAB. [Concomitant]
     Active Substance: TREMELIMUMAB
     Indication: SQUAMOUS CELL CARCINOMA OF HEAD AND NECK
     Dosage: 75 MILLIGRAM
     Route: 041
     Dates: start: 20191008, end: 20191104

REACTIONS (1)
  - Mouth haemorrhage [Unknown]

NARRATIVE: CASE EVENT DATE: 20191213
